FAERS Safety Report 9312776 (Version 3)
Quarter: 2014Q2

REPORT INFORMATION
  Report Type: Report from Study
  Country: US (occurrence: US)
  Receive Date: 20130528
  Receipt Date: 20140414
  Transmission Date: 20141212
  Serious: Yes (Other)
  Sender: FDA-Public Use
  Company Number: US-ROCHE-1204582

PATIENT
  Age: 39 Year
  Sex: Female
  Weight: 63.33 kg

DRUGS (8)
  1. TRASTUZUMAB EMTANSINE [Suspect]
     Indication: HER-2 POSITIVE BREAST CANCER
     Dosage: FIRST DOSE LEVEL, AS PER PROTOCOL
     Route: 042
     Dates: start: 20121016
  2. TRASTUZUMAB EMTANSINE [Suspect]
     Dosage: SECOND DOSE LEVEL, AS PER PROTOCOL?DATE OF LAST DOSE PRIOR TO SAE: 08/JAN/2013.
     Route: 042
     Dates: start: 20130108, end: 20130108
  3. DOCETAXEL [Suspect]
     Indication: HER-2 POSITIVE BREAST CANCER
     Route: 042
     Dates: start: 20121016, end: 20130107
  4. DOCETAXEL [Suspect]
     Dosage: DOSE REDUCED. DATE OF LAST DOSE PRIOR TO SAE: 08/JAN/2013.
     Route: 042
     Dates: start: 20130108, end: 20130108
  5. NEULASTA [Concomitant]
     Route: 065
     Dates: start: 20121017, end: 20130109
  6. LYRICA [Concomitant]
     Route: 065
     Dates: start: 20130102, end: 20130315
  7. ZANTAC [Concomitant]
     Route: 065
     Dates: start: 20130122
  8. VICODIN [Concomitant]
     Route: 065
     Dates: start: 20121113

REACTIONS (1)
  - Dermatomyositis [Recovered/Resolved]
